FAERS Safety Report 7125045-2 (Version None)
Quarter: 2010Q4

REPORT INFORMATION
  Report Type: 
  Country: None (occurrence: None)
  Receive Date: 20101115
  Receipt Date: 20101101
  Transmission Date: 20110411
  Serious: Yes (Hospitalization, Other)
  Sender: FDA-Public Use
  Company Number: 2010P1002380

PATIENT
  Age: 46 Year
  Sex: Male
  Weight: 99.7913 kg

DRUGS (5)
  1. PROPAFENON (NO PREF. NAME) [Suspect]
     Indication: ATRIAL FIBRILLATION
     Dosage: (325 MG; BID; PO) (425 MG; BID; PO)
     Route: 048
     Dates: start: 20090101, end: 20090101
  2. PROPAFENON (NO PREF. NAME) [Suspect]
     Indication: ATRIAL FIBRILLATION
     Dosage: (325 MG; BID; PO) (425 MG; BID; PO)
     Route: 048
     Dates: start: 20090101, end: 20090201
  3. DILTIAZEM [Suspect]
     Indication: ATRIAL FIBRILLATION
     Dates: start: 20090101
  4. METOPROLOL (NO PREF. NAME) [Suspect]
     Indication: ATRIAL FIBRILLATION
     Dates: start: 20090101
  5. SIMVASTATIN [Suspect]
     Indication: ATRIAL FIBRILLATION
     Dates: start: 20090101

REACTIONS (16)
  - ALCOHOL INTERACTION [None]
  - ALCOHOL USE [None]
  - ASPARTATE AMINOTRANSFERASE INCREASED [None]
  - ATRIAL FLUTTER [None]
  - BUNDLE BRANCH BLOCK [None]
  - CONDITION AGGRAVATED [None]
  - DYSPNOEA [None]
  - DYSPNOEA EXERTIONAL [None]
  - ELECTROCARDIOGRAM QRS COMPLEX PROLONGED [None]
  - FALL [None]
  - LEFT VENTRICULAR DYSFUNCTION [None]
  - QRS AXIS ABNORMAL [None]
  - REFUSAL OF TREATMENT BY PATIENT [None]
  - SKIN LACERATION [None]
  - SUBDURAL HAEMATOMA [None]
  - SYNCOPE [None]
